FAERS Safety Report 7829774-4 (Version None)
Quarter: 2011Q4

REPORT INFORMATION
  Report Type: 
  Country: None (occurrence: None)
  Receive Date: 20111021
  Receipt Date: 20111011
  Transmission Date: 20120403
  Serious: Yes (Other)
  Sender: FDA-Public Use
  Company Number: US-JNJFOC-20111004995

PATIENT
  Sex: Male
  Weight: 90.72 kg

DRUGS (2)
  1. LIALDA [Concomitant]
     Indication: COLITIS ULCERATIVE
     Dosage: TOTAL DAILY DOSE 2.4 G
     Route: 048
  2. REMICADE [Suspect]
     Indication: COLITIS ULCERATIVE
     Route: 042
     Dates: start: 20110901, end: 20110928

REACTIONS (8)
  - HEADACHE [None]
  - ABDOMINAL PAIN UPPER [None]
  - DECREASED APPETITE [None]
  - GENERAL PHYSICAL HEALTH DETERIORATION [None]
  - FEELING ABNORMAL [None]
  - INFUSION RELATED REACTION [None]
  - GAIT DISTURBANCE [None]
  - CHILLS [None]
